FAERS Safety Report 9215632 (Version 1)
Quarter: 2013Q2

REPORT INFORMATION
  Report Type: Spontaneous
  Country: US (occurrence: US)
  Receive Date: 20130408
  Receipt Date: 20130408
  Transmission Date: 20140414
  Serious: Yes (Other)
  Sender: FDA-Public Use
  Company Number: US-PFIZER INC-2013104288

PATIENT
  Sex: Male
  Weight: 74.83 kg

DRUGS (4)
  1. ADVIL ALLERGY AND CONGESTION RELIEF [Suspect]
     Indication: SINUS DISORDER
     Dosage: 200 MG, SINGLE
     Route: 048
     Dates: start: 201303, end: 201303
  2. ADVIL ALLERGY AND CONGESTION RELIEF [Suspect]
     Dosage: 200 MG, SINGLE
     Route: 048
     Dates: start: 201303, end: 201303
  3. METFORMIN [Concomitant]
     Indication: DIABETES MELLITUS
     Dosage: 1000 MG, 2X/DAY
  4. GLIPIZIDE [Concomitant]
     Indication: DIABETES MELLITUS
     Dosage: 5 MG, 2X/DAY

REACTIONS (2)
  - Abasia [Recovered/Resolved]
  - Dizziness [Recovered/Resolved]
